FAERS Safety Report 4581687-X (Version None)
Quarter: 2005Q1

REPORT INFORMATION
  Report Type: 
  Country: None (occurrence: None)
  Receive Date: 20050214
  Receipt Date: 20041216
  Transmission Date: 20050727
  Serious: No
  Sender: FDA-Public Use
  Company Number: US-GLAXOSMITHKLINE-A0537629A

PATIENT
  Sex: Male

DRUGS (3)
  1. LAMICTAL [Suspect]
     Indication: ANXIETY
     Dosage: 100MG PER DAY
     Route: 048
  2. BLOOD PRESSURE MEDICATION [Concomitant]
  3. MULTIPLE MEDICATIONS [Concomitant]

REACTIONS (1)
  - URINARY RETENTION [None]
